FAERS Safety Report 4910857-3 (Version None)
Quarter: 2006Q1

REPORT INFORMATION
  Report Type: 
  Country: None (occurrence: None)
  Receive Date: 20060214
  Receipt Date: 20060208
  Transmission Date: 20060701
  Serious: Yes (Other)
  Sender: FDA-Public Use
  Company Number: ES-GLAXOSMITHKLINE-B0411224A

PATIENT
  Age: 63 Year
  Sex: Female
  Weight: 56 kg

DRUGS (1)
  1. ZYNTABAC [Suspect]
     Route: 048
     Dates: start: 20051224, end: 20060105

REACTIONS (4)
  - ADVERSE DRUG REACTION [None]
  - EXTRAPYRAMIDAL DISORDER [None]
  - MUSCLE CONTRACTIONS INVOLUNTARY [None]
  - TREMOR [None]
